FAERS Safety Report 6597814-9 (Version None)
Quarter: 2010Q1

REPORT INFORMATION
  Report Type: 
  Country: None (occurrence: None)
  Receive Date: 20100216
  Receipt Date: 20100202
  Transmission Date: 20100710
  Serious: Yes (Hospitalization)
  Sender: FDA-Public Use
  Company Number: 232618J09USA

PATIENT
  Age: 49 Year
  Sex: Female

DRUGS (5)
  1. REBIF [Suspect]
     Indication: MULTIPLE SCLEROSIS
     Dosage: 44 MCG, 3 IN 1 WEEKS, SUBCUTANEOUS
     Route: 058
     Dates: start: 20090824
  2. IBUPROFEN [Concomitant]
  3. MORPHINE [Concomitant]
  4. AMITRIPTYLINE (AMITRIPTYLINE /000002201) [Concomitant]
  5. ADVAIR HFA [Concomitant]

REACTIONS (3)
  - ASTHMA [None]
  - CONDITION AGGRAVATED [None]
  - TREATMENT NONCOMPLIANCE [None]
